FAERS Safety Report 7222116-7 (Version None)
Quarter: 2011Q1

REPORT INFORMATION
  Report Type: 
  Country: None (occurrence: None)
  Receive Date: 20110112
  Receipt Date: 20110105
  Transmission Date: 20110831
  Serious: Yes (Other)
  Sender: FDA-Public Use
  Company Number: GB-PFIZER INC-2011003566

PATIENT
  Age: 46 Year
  Sex: Male

DRUGS (6)
  1. PARACETAMOL [Suspect]
     Indication: ANALGESIC THERAPY
     Dosage: 1 G, UNK
  2. GINKGO BILOBA [Suspect]
  3. GINGER [Suspect]
  4. GARLIC [Suspect]
  5. IBUPROFEN [Suspect]
     Indication: ANALGESIC THERAPY
     Dosage: 400 MG, UNK
  6. GINSENG [Suspect]

REACTIONS (2)
  - DRUG INTERACTION [None]
  - POST PROCEDURAL HAEMORRHAGE [None]
